FAERS Safety Report 15328569 (Version 5)
Quarter: 2018Q4

REPORT INFORMATION
  Report Type: Report from Study
  Country: GB (occurrence: GB)
  Receive Date: 20180829
  Receipt Date: 20181219
  Transmission Date: 20190204
  Serious: Yes (Hospitalization)
  Sender: FDA-Public Use
  Company Number: GB-ROCHE-1904558

PATIENT
  Sex: Male
  Weight: 79 kg

DRUGS (4)
  1. ESBRIET [Suspect]
     Active Substance: PIRFENIDONE
     Indication: IDIOPATHIC PULMONARY FIBROSIS
     Route: 048
     Dates: start: 20170210, end: 20180105
  2. ESBRIET [Suspect]
     Active Substance: PIRFENIDONE
     Route: 048
  3. ESBRIET [Suspect]
     Active Substance: PIRFENIDONE
     Route: 048
     Dates: start: 20150617
  4. ESBRIET [Suspect]
     Active Substance: PIRFENIDONE
     Route: 048
     Dates: start: 20170221

REACTIONS (38)
  - Fatigue [Unknown]
  - Decreased appetite [Unknown]
  - Constipation [Not Recovered/Not Resolved]
  - Gastrooesophageal reflux disease [Unknown]
  - Total lung capacity decreased [Unknown]
  - Insomnia [Unknown]
  - Somnolence [Unknown]
  - Arthropathy [Unknown]
  - Lethargy [Unknown]
  - Chest discomfort [Recovering/Resolving]
  - Lung disorder [Unknown]
  - Heart rate decreased [Not Recovered/Not Resolved]
  - Rhinorrhoea [Unknown]
  - Hypotonia [Unknown]
  - Dyspnoea [Recovering/Resolving]
  - Blood pressure abnormal [Unknown]
  - Oxygen saturation decreased [Not Recovered/Not Resolved]
  - Cough [Unknown]
  - Depression [Unknown]
  - Weight decreased [Unknown]
  - Productive cough [Unknown]
  - Physical deconditioning [Unknown]
  - Micturition urgency [Unknown]
  - General physical health deterioration [Unknown]
  - Malaise [Unknown]
  - Asthenia [Not Recovered/Not Resolved]
  - Diarrhoea [Not Recovered/Not Resolved]
  - Nausea [Unknown]
  - Fluid retention [Unknown]
  - Sputum discoloured [Not Recovered/Not Resolved]
  - Heart rate decreased [Unknown]
  - Dry mouth [Unknown]
  - Peripheral swelling [Unknown]
  - Nasal disorder [Unknown]
  - Lower respiratory tract infection [Not Recovered/Not Resolved]
  - Anaemia [Unknown]
  - Quality of life decreased [Unknown]
  - Mood swings [Unknown]
